FAERS Safety Report 8257542-0 (Version None)
Quarter: 2012Q1

REPORT INFORMATION
  Report Type: 
  Country: None (occurrence: None)
  Receive Date: 20120330
  Receipt Date: 20120330
  Transmission Date: 20120608
  Serious: Yes (Disabling)
  Sender: FDA-Public Use
  Company Number: None

PATIENT
  Sex: Female
  Weight: 101.6057 kg

DRUGS (1)
  1. LORTAB [Suspect]
     Indication: PAIN
     Dosage: TWO TWICE PER DAY
     Dates: start: 20110814

REACTIONS (4)
  - ABDOMINAL PAIN [None]
  - CONSTIPATION [None]
  - DYSPEPSIA [None]
  - NAUSEA [None]
